FAERS Safety Report 9778816 (Version 2)
Quarter: 2014Q1

REPORT INFORMATION
  Report Type: Spontaneous
  Country: US (occurrence: US)
  Receive Date: 20131223
  Receipt Date: 20140131
  Transmission Date: 20141002
  Serious: Yes (Other)
  Sender: FDA-Public Use
  Company Number: US-009507513-1312USA008100

PATIENT
  Sex: Female

DRUGS (19)
  1. PRINIVIL [Suspect]
  2. PROVENTIL [Concomitant]
     Dosage: INHALE 2 PUFFS BY INHALATION ROUTE EVERY 6 HOURS AS NEEDED FOR 90 DAYS
     Route: 055
     Dates: start: 20130521
  3. AMLODIPINE [Concomitant]
     Dosage: 2 TABLETS BY MOUTH IN THE MORNING AND 1 TABLET IN THE EVENING
     Route: 048
     Dates: start: 20130930
  4. BENICAR [Concomitant]
     Dosage: 1 TABLET BY MOUTH TWICE A DAY
     Route: 048
     Dates: start: 20131008
  5. CARAFATE [Concomitant]
     Dosage: 1 TABLET (1 GRAM) BY ORAL ROUTE 2 TIMES PER DAY ON AN EMPTY STOMACH FOR 90 DAYS
     Route: 048
     Dates: start: 20130702
  6. CIPRO (CIPROFLOXACIN) [Concomitant]
     Dosage: 1 TABLET (500 MG) BY ORAL ROUTE EVERY 12 HOURS FOR 5 DAYS
     Route: 048
     Dates: start: 20131024
  7. DIFLUCAN [Concomitant]
     Dosage: TAKE 1 TABLET (150 MG) BY ORAL ROUTE ONCE FOR 1 DAY
     Route: 048
     Dates: start: 20131024
  8. HUMALOG MIX [Concomitant]
     Dosage: 35 UNITS IN AM SUBCUTANEOUS, FORMULATION: 100 UNIT/ML
     Route: 058
     Dates: start: 20130916
  9. HUMALOG MIX [Concomitant]
     Dosage: 25 UNITS IN THE PM SUBCUTANEOUS, FORMULATION: 100 UNIT/ML
     Route: 058
  10. KEFLEX [Concomitant]
     Dosage: TAKE 1 CAPSULE (500 MG) BY ORAL ROUTE EVERY 6 HOURS FOR 10 DAYS
     Route: 048
     Dates: start: 20130930
  11. NEXIUM [Concomitant]
     Dosage: TAKE 1 CAPSULE (40 MG) BY ORAL ROUTE 2 TIMES PER DAY FOR 90 DAYS
     Route: 048
     Dates: start: 20130430
  12. NORVASC [Concomitant]
     Dosage: TAKE 2 (5 MG) IN THE MORNING AND 1(2.5 MG) IN THE EVENING
     Route: 048
     Dates: start: 20130930
  13. NORVASC [Concomitant]
     Dosage: TAKE 1 (2.5 MG) IN THE EVENING
     Route: 048
     Dates: start: 20130930
  14. PREMARIN [Concomitant]
     Dosage: 0/625 MG/GM APPLY A SMALL AMOUNT THE SIZE OF A PEA TO THE VULVAR TISSUE EXTERNALLY TWICE A WEEK
     Route: 061
     Dates: start: 20131015
  15. REGLAN [Concomitant]
     Dosage: TAKE 1 TABLET (5 MG) BY ORAL ROUTE 4 TIMES A DAY FOR 90 DAYS
     Route: 048
     Dates: start: 20130521
  16. TOPROL XL TABLETS [Concomitant]
     Dosage: TAKE 1 TABLET (25 MG) BY ORAL ROUTE TWICE A DAY (BID) FOR 90 DAYS
     Route: 048
     Dates: start: 20130930
  17. TUMS [Concomitant]
     Dosage: UNK
  18. CYANOCOBALAMIN [Concomitant]
     Dosage: TAKE 1 TABLET BY ORAL ROUTE DAILY FOR 30 DAYS
     Route: 048
     Dates: start: 20100510
  19. XANAX [Concomitant]
     Dosage: TAKE 1 TABLET BY ORAL ROUTE DAILY AS NEEDED FOR 30 DAYS
     Route: 048
     Dates: start: 20130521

REACTIONS (2)
  - Cholecystectomy [Unknown]
  - Drug ineffective [Unknown]
